FAERS Safety Report 10099761 (Version 1)
Quarter: 2014Q2

REPORT INFORMATION
  Report Type: Spontaneous
  Country: ES (occurrence: ES)
  Receive Date: 20140423
  Receipt Date: 20140423
  Transmission Date: 20141212
  Serious: Yes (Other)
  Sender: FDA-Public Use
  Company Number: ES-GLAXOSMITHKLINE-B0986843A

PATIENT
  Age: 34 Year
  Sex: Female
  Weight: 97.7 kg

DRUGS (2)
  1. ORLISTAT [Suspect]
     Indication: OBESITY
     Dosage: 120MG TWICE PER DAY
     Route: 065
     Dates: start: 200912, end: 201003
  2. DOXYCYCLINE [Concomitant]
     Indication: HIDRADENITIS
     Dosage: 100MG PER DAY
     Route: 065
     Dates: start: 20100305, end: 20100329

REACTIONS (6)
  - Anaemia macrocytic [Recovered/Resolved]
  - Thrombocytopenia [Unknown]
  - Splenomegaly [Unknown]
  - Contusion [Unknown]
  - Fatigue [Unknown]
  - Bicytopenia [Unknown]
